FAERS Safety Report 17376849 (Version 1)
Quarter: 2020Q1

REPORT INFORMATION
  Report Type: Spontaneous
  Country: US (occurrence: US)
  Receive Date: 20200206
  Receipt Date: 20200206
  Transmission Date: 20200409
  Serious: No
  Sender: FDA-Public Use
  Company Number: US-JNJFOC-20200143117

PATIENT
  Age: 58 Year
  Sex: Female
  Weight: 77.18 kg

DRUGS (1)
  1. RISPERDAL CONSTA [Suspect]
     Active Substance: RISPERIDONE
     Indication: MAJOR DEPRESSION
     Route: 030
     Dates: start: 201811

REACTIONS (2)
  - Fear [Unknown]
  - Product dose omission [Unknown]

NARRATIVE: CASE EVENT DATE: 20200124
